FAERS Safety Report 6490057-9 (Version None)
Quarter: 2009Q4

REPORT INFORMATION
  Report Type: 
  Country: None (occurrence: None)
  Receive Date: 20091211
  Receipt Date: 20091014
  Transmission Date: 20100525
  Serious: No
  Sender: FDA-Public Use
  Company Number: A0602149A

PATIENT
  Age: 50 Year
  Sex: Female

DRUGS (5)
  1. FLONASE [Suspect]
     Dosage: 50MCG VARIABLE DOSE
     Route: 045
     Dates: end: 20050801
  2. ALBUTEROL [Suspect]
     Indication: LABORATORY TEST
     Route: 055
  3. CLOBETASOL PROPIONATE [Concomitant]
  4. ZANTAC [Concomitant]
  5. MECLIZINE [Concomitant]

REACTIONS (5)
  - BLOOD PRESSURE INCREASED [None]
  - CONFUSIONAL STATE [None]
  - PALPITATIONS [None]
  - PANIC ATTACK [None]
  - SLEEP TERROR [None]
